FAERS Safety Report 14538902 (Version 3)
Quarter: 2019Q3

REPORT INFORMATION
  Report Type: Spontaneous
  Country: US (occurrence: US)
  Receive Date: 20180216
  Receipt Date: 20190710
  Transmission Date: 20191004
  Serious: Yes (Hospitalization)
  Sender: FDA-Public Use
  Company Number: US-PFIZER INC-2018058296

PATIENT
  Age: 84 Year
  Sex: Male
  Weight: 118 kg

DRUGS (10)
  1. KAYEXALATE [Concomitant]
     Active Substance: SODIUM POLYSTYRENE SULFONATE
     Dosage: UNK
     Dates: end: 20180202
  2. SUTENT [Suspect]
     Active Substance: SUNITINIB MALATE
     Dosage: 50 MG, CYCLIC (4 CAPSULES OF 12.5 MG), CYCLIC (2 WEEKS ON, 1 WEEK OFF)
     Dates: start: 20171220
  3. CELEBREX [Concomitant]
     Active Substance: CELECOXIB
     Dosage: UNK
     Dates: end: 2017
  4. SUTENT [Suspect]
     Active Substance: SUNITINIB MALATE
     Indication: RENAL CANCER
     Dosage: 25 MG, CYCLIC (2 WEEK ON 1 WEEK OFF)
     Dates: start: 201702, end: 2017
  5. SUTENT [Suspect]
     Active Substance: SUNITINIB MALATE
     Dosage: 37.5 MG, CYCLIC (3 CAPSULES OF 12.5 MG), CYCLIC (2 WEEKS, THEN OFF FOR 1 WEEK)
     Dates: end: 20180102
  6. SUTENT [Suspect]
     Active Substance: SUNITINIB MALATE
     Dosage: UNK
     Dates: start: 20180110, end: 20180113
  7. SUTENT [Suspect]
     Active Substance: SUNITINIB MALATE
     Dosage: 37.5 MG, CYCLIC (1 CAPSULE DAILY FOR 2 WEEKS, THEN OFF FOR 1)
     Dates: start: 20180204
  8. MIRALAX [Concomitant]
     Active Substance: POLYETHYLENE GLYCOL 3350
     Dosage: UNK
  9. MAGNESIUM [Concomitant]
     Active Substance: MAGNESIUM
     Dosage: UNK
     Dates: end: 20180202
  10. SUTENT [Suspect]
     Active Substance: SUNITINIB MALATE
     Dosage: 25 MG, CYCLIC (1 DAY 2 WEEK OFF ONE WEEK)
     Dates: start: 201703, end: 2017

REACTIONS (7)
  - Neoplasm progression [Not Recovered/Not Resolved]
  - Blood potassium increased [Not Recovered/Not Resolved]
  - Musculoskeletal pain [Not Recovered/Not Resolved]
  - Product dose omission [Unknown]
  - Feeling abnormal [Not Recovered/Not Resolved]
  - Pain in extremity [Not Recovered/Not Resolved]
  - Breast pain [Not Recovered/Not Resolved]

NARRATIVE: CASE EVENT DATE: 20180113
